FAERS Safety Report 11152016 (Version 2)
Quarter: 2016Q1

REPORT INFORMATION
  Report Type: Spontaneous
  Country: IT (occurrence: IT)
  Receive Date: 20150601
  Receipt Date: 20160217
  Transmission Date: 20160525
  Serious: Yes (Other)
  Sender: FDA-Public Use
  Company Number: IT-PFIZER INC-2015180812

PATIENT
  Sex: Female
  Weight: 3 kg

DRUGS (1)
  1. PROSTIN E2 [Suspect]
     Active Substance: DINOPROSTONE
     Indication: HEART DISEASE CONGENITAL
     Dosage: UNK
     Dates: start: 20150522

REACTIONS (2)
  - Off label use [Unknown]
  - Apnoea [Unknown]

NARRATIVE: CASE EVENT DATE: 20150522
